FAERS Safety Report 8092905-8 (Version None)
Quarter: 2012Q1

REPORT INFORMATION
  Report Type: 
  Country: None (occurrence: None)
  Receive Date: 20120128
  Receipt Date: 20110804
  Transmission Date: 20120608
  Serious: No
  Sender: FDA-Public Use
  Company Number: US-ABBOTT-11P-163-0844165-00

PATIENT
  Age: 27 Year
  Sex: Female

DRUGS (3)
  1. IMURAN [Concomitant]
     Indication: PRODUCT USED FOR UNKNOWN INDICATION
  2. PRILOSEC [Concomitant]
     Indication: GASTROOESOPHAGEAL REFLUX DISEASE
  3. HUMIRA [Suspect]
     Indication: CROHN'S DISEASE
     Dates: start: 20110607

REACTIONS (4)
  - PRURITUS [None]
  - INJECTION SITE REACTION [None]
  - APPLICATION SITE WARMTH [None]
  - RASH PAPULAR [None]
